FAERS Safety Report 4913064-3 (Version None)
Quarter: 2006Q1

REPORT INFORMATION
  Report Type: 
  Country: None (occurrence: None)
  Receive Date: 20060210
  Receipt Date: 20060127
  Transmission Date: 20060701
  Serious: Yes (Death)
  Sender: FDA-Public Use
  Company Number: L05-USA-03935-60

PATIENT
  Age: 46 Year
  Sex: Female

DRUGS (4)
  1. PROPRANOLOL [Suspect]
  2. QUETIAPINE FUMARATE [Suspect]
  3. CYCLOBENZAPRINE HCL [Suspect]
  4. ACETAMINOPHEN AND HYDROCODONE BITARTRATE [Suspect]

REACTIONS (7)
  - BLOOD PRESSURE DECREASED [None]
  - BREATH SOUNDS ABNORMAL [None]
  - CARDIAC ARREST [None]
  - COMPLETED SUICIDE [None]
  - HEART RATE DECREASED [None]
  - MULTIPLE DRUG OVERDOSE INTENTIONAL [None]
  - RESPIRATORY ARREST [None]
